FAERS Safety Report 8025042-9 (Version None)
Quarter: 2012Q1

REPORT INFORMATION
  Report Type: 
  Country: None (occurrence: None)
  Receive Date: 20120105
  Receipt Date: 20111227
  Transmission Date: 20120608
  Serious: Yes (Hospitalization, Disabling)
  Sender: FDA-Public Use
  Company Number: US-MERCK-1110USA02739

PATIENT
  Age: 74 Year
  Sex: Female
  Weight: 60 kg

DRUGS (4)
  1. FOSAMAX [Suspect]
     Indication: OSTEOPOROSIS
     Route: 048
     Dates: start: 20070101, end: 20091001
  2. ACTONEL [Suspect]
     Indication: OSTEOPENIA
     Route: 065
     Dates: start: 20050101, end: 20070301
  3. FOSAMAX [Suspect]
     Indication: OSTEOPENIA
     Route: 048
     Dates: start: 20070101, end: 20091001
  4. ACTONEL [Suspect]
     Indication: OSTEOPOROSIS
     Route: 065
     Dates: start: 20050101, end: 20070301

REACTIONS (35)
  - HYPERSENSITIVITY [None]
  - GASTROOESOPHAGEAL REFLUX DISEASE [None]
  - FEMUR FRACTURE [None]
  - ANXIETY [None]
  - EXOSTOSIS [None]
  - DYSPNOEA [None]
  - OSTEOARTHRITIS [None]
  - HYPOTENSION [None]
  - HYPERLIPIDAEMIA [None]
  - ARTHRITIS [None]
  - PULMONARY HYPERTENSION [None]
  - TRANSIENT ISCHAEMIC ATTACK [None]
  - ARTHRALGIA [None]
  - POLLAKIURIA [None]
  - CATARACT [None]
  - GLUCOSE TOLERANCE IMPAIRED [None]
  - GAIT DISTURBANCE [None]
  - APPENDICITIS [None]
  - GLOSSITIS [None]
  - SEASONAL ALLERGY [None]
  - HYPOKALAEMIA [None]
  - LATEX ALLERGY [None]
  - DRUG HYPERSENSITIVITY [None]
  - VITAMIN D DEFICIENCY [None]
  - GASTRITIS ATROPHIC [None]
  - EAR PAIN [None]
  - FALL [None]
  - ANAEMIA [None]
  - LOW TURNOVER OSTEOPATHY [None]
  - SLEEP APNOEA SYNDROME [None]
  - COUGH [None]
  - JOINT EFFUSION [None]
  - INSOMNIA [None]
  - DEPRESSION [None]
  - DIABETES MELLITUS [None]
